FAERS Safety Report 9593994 (Version 1)
Quarter: 2013Q4

REPORT INFORMATION
  Report Type: Spontaneous
  Country: US (occurrence: US)
  Receive Date: 20131004
  Receipt Date: 20131004
  Transmission Date: 20140711
  Serious: No
  Sender: FDA-Public Use
  Company Number: US-PURDUE-USA-2012-0090339

PATIENT
  Sex: Female
  Weight: 82.99 kg

DRUGS (1)
  1. BUTRANS [Suspect]
     Indication: MUSCULOSKELETAL PAIN
     Dosage: 5 MCG/HR, UNK
     Route: 062
     Dates: start: 20120620

REACTIONS (1)
  - Chest discomfort [Unknown]
